FAERS Safety Report 14869340 (Version 1)
Quarter: 2018Q2

REPORT INFORMATION
  Report Type: Spontaneous
  Country: US (occurrence: US)
  Receive Date: 20180423
  Receipt Date: 20180423
  Transmission Date: 20180711
  Serious: No
  Sender: FDA-Public Use
  Company Number: None

PATIENT
  Age: 49 Year
  Sex: Female

DRUGS (1)
  1. IBRANCE [Suspect]
     Active Substance: PALBOCICLIB
     Indication: BREAST CANCER
     Dosage: ONE CAPSULE DAILY FOR 3 WEEKS ON AND 1 OFF BY MOUTH
     Route: 048
     Dates: start: 20180214

REACTIONS (3)
  - Alopecia [None]
  - Toothache [None]
  - Insomnia [None]

NARRATIVE: CASE EVENT DATE: 20180418
